FAERS Safety Report 4451534-5 (Version None)
Quarter: 2004Q3

REPORT INFORMATION
  Report Type: 
  Country: None (occurrence: None)
  Receive Date: 20040915
  Receipt Date: 20040901
  Transmission Date: 20050211
  Serious: Yes (Death)
  Sender: FDA-Public Use
  Company Number: 2004231842US

PATIENT
  Age: 55 Year
  Sex: Female

DRUGS (3)
  1. PROVERA [Suspect]
     Dates: start: 19960101, end: 19970101
  2. ESTRACE [Suspect]
     Dates: start: 19960101, end: 19970101
  3. PREMPRO [Suspect]
     Dates: start: 19960101, end: 20000101

REACTIONS (1)
  - BREAST CANCER FEMALE [None]
